FAERS Safety Report 4815767-8 (Version None)
Quarter: 2005Q4

REPORT INFORMATION
  Report Type: 
  Country: None (occurrence: None)
  Receive Date: 20051031
  Receipt Date: 20051025
  Transmission Date: 20060501
  Serious: Yes (Life-Threatening, Hospitalization, Other)
  Sender: FDA-Public Use
  Company Number: US-GLAXOSMITHKLINE-A0579596A

PATIENT
  Age: 53 Year
  Sex: Female

DRUGS (17)
  1. ZOFRAN [Suspect]
     Indication: PROPHYLAXIS OF NAUSEA AND VOMITING
     Route: 042
     Dates: start: 20050728, end: 20050728
  2. ATIVAN [Concomitant]
  3. DECADRON [Concomitant]
  4. CALCIUM GLUCONATE [Concomitant]
  5. IRON [Concomitant]
  6. ERLOTINIB [Concomitant]
  7. COUMADIN [Concomitant]
  8. LASIX [Concomitant]
  9. MAGNESIUM [Concomitant]
     Route: 042
  10. IV POTASSIUM [Concomitant]
  11. MULTI-VITAMIN [Concomitant]
  12. NAVELBINE [Concomitant]
  13. CISPLATIN [Concomitant]
  14. AVASTIN [Concomitant]
  15. ZOMETA [Concomitant]
  16. ARANESP [Concomitant]
  17. NEUPOGEN [Concomitant]

REACTIONS (5)
  - ABNORMAL SENSATION IN EYE [None]
  - DIZZINESS [None]
  - HEART RATE INCREASED [None]
  - PULMONARY OEDEMA [None]
  - VISION BLURRED [None]
